FAERS Safety Report 10097983 (Version 1)
Quarter: 2014Q2

REPORT INFORMATION
  Report Type: Spontaneous
  Country: MY (occurrence: MY)
  Receive Date: 20140423
  Receipt Date: 20140423
  Transmission Date: 20141212
  Serious: Yes (Death)
  Sender: FDA-Public Use
  Company Number: MY-BRISTOL-MYERS SQUIBB COMPANY-20653895

PATIENT
  Age: 25 Year
  Sex: Male

DRUGS (5)
  1. STOCRIN CAPS [Suspect]
     Indication: RETROVIRAL INFECTION
     Route: 048
  2. LEVOFLOXACIN [Concomitant]
  3. EMTRICITABINE/TENOFOVIR DISOPROXIL FUMARATE [Concomitant]
  4. ETHAMBUTOL HCL [Concomitant]
  5. PENTAMIDINE ISETHIONATE [Concomitant]

REACTIONS (1)
  - Toxic epidermal necrolysis [Fatal]
